FAERS Safety Report 6782814-6 (Version None)
Quarter: 2010Q2

REPORT INFORMATION
  Report Type: 
  Country: None (occurrence: None)
  Receive Date: 20100616
  Receipt Date: 20100601
  Transmission Date: 20101027
  Serious: Yes (Other)
  Sender: FDA-Public Use
  Company Number: 2010SCPR001156

PATIENT
  Age: 27 Day
  Sex: Male

DRUGS (2)
  1. PROPRANOLOL [Suspect]
     Indication: HAEMANGIOMA OF LIVER
     Dosage: 2 MG/KG PER DAY, ORAL; LOWER DOSAGE, ORAL
     Route: 048
  2. PROPRANOLOL [Suspect]
     Indication: HAEMANGIOMA OF SKIN
     Dosage: 2 MG/KG PER DAY, ORAL; LOWER DOSAGE, ORAL
     Route: 048

REACTIONS (2)
  - CONVULSION [None]
  - HYPOGLYCAEMIA [None]
